FAERS Safety Report 9409544 (Version 1)
Quarter: 2013Q3

REPORT INFORMATION
  Report Type: Spontaneous
  Country: NL (occurrence: NL)
  Receive Date: 20130719
  Receipt Date: 20130719
  Transmission Date: 20140515
  Serious: Yes (Other)
  Sender: FDA-Public Use
  Company Number: NL-JNJFOC-20130708452

PATIENT
  Sex: 0

DRUGS (20)
  1. DOXORUBICIN [Suspect]
     Indication: ENDOMETRIAL CANCER
     Route: 042
  2. DOXORUBICIN [Suspect]
     Indication: EWING^S SARCOMA
     Route: 042
  3. DOXORUBICIN [Suspect]
     Indication: OSTEOSARCOMA
     Route: 042
  4. DOXORUBICIN [Suspect]
     Indication: BREAST CANCER
     Route: 042
  5. DOXORUBICIN [Suspect]
     Indication: NEOPLASM MALIGNANT
     Route: 042
  6. ETOPOSIDE [Suspect]
     Indication: EWING^S SARCOMA
     Route: 065
  7. ETOPOSIDE [Suspect]
     Indication: NEOPLASM MALIGNANT
     Route: 065
  8. VINCRISTINE [Suspect]
     Indication: EWING^S SARCOMA
     Route: 065
  9. VINCRISTINE [Suspect]
     Indication: NEOPLASM MALIGNANT
     Route: 065
  10. IFOSFAMIDE [Suspect]
     Indication: EWING^S SARCOMA
     Route: 065
  11. IFOSFAMIDE [Suspect]
     Indication: NEOPLASM MALIGNANT
     Route: 065
  12. ACTINOMYCINES [Suspect]
     Indication: NEOPLASM MALIGNANT
     Route: 065
  13. DOCETAXEL [Suspect]
     Indication: NEOPLASM MALIGNANT
     Route: 065
  14. CYCLOPHOSPHAMIDE [Suspect]
     Indication: BREAST CANCER
     Route: 065
  15. CYCLOPHOSPHAMIDE [Suspect]
     Indication: NEOPLASM MALIGNANT
     Route: 065
  16. METHOTREXATE [Suspect]
     Indication: NEOPLASM MALIGNANT
     Route: 065
  17. CISPLATIN [Suspect]
     Indication: ENDOMETRIAL CANCER
     Route: 065
  18. CISPLATIN [Suspect]
     Indication: OSTEOSARCOMA
     Route: 065
  19. CISPLATIN [Suspect]
     Indication: NEOPLASM MALIGNANT
     Route: 065
  20. 5-FLUOROURACIL [Suspect]
     Indication: NEOPLASM MALIGNANT
     Route: 065

REACTIONS (5)
  - Blood creatine phosphokinase MB increased [Unknown]
  - Atrial natriuretic peptide increased [Unknown]
  - N-terminal prohormone brain natriuretic peptide increased [Unknown]
  - Electrocardiogram QT prolonged [Unknown]
  - Off label use [Unknown]
